FAERS Safety Report 14192307 (Version 1)
Quarter: 2017Q4

REPORT INFORMATION
  Report Type: Spontaneous
  Country: US (occurrence: US)
  Receive Date: 20171115
  Receipt Date: 20171115
  Transmission Date: 20180321
  Serious: No
  Sender: FDA-Public Use
  Company Number: US-BAYER-2017-220865

PATIENT
  Age: 76 Year
  Sex: Female

DRUGS (1)
  1. BETASERON [Suspect]
     Active Substance: INTERFERON BETA-1B
     Indication: MULTIPLE SCLEROSIS
     Dosage: 0.3 MG, QOD
     Route: 058
     Dates: start: 20120613

REACTIONS (7)
  - Hypoaesthesia [None]
  - Muscle spasms [None]
  - Anal incontinence [None]
  - Fatigue [None]
  - Discomfort [None]
  - Gait disturbance [None]
  - Urinary incontinence [None]
